FAERS Safety Report 8622807-7 (Version None)
Quarter: 2012Q3

REPORT INFORMATION
  Report Type: 
  Country: None (occurrence: None)
  Receive Date: 20120827
  Receipt Date: 20120822
  Transmission Date: 20120928
  Serious: No
  Sender: FDA-Public Use
  Company Number: US-B.I. PHARMACEUTICALS,INC./RIDGEFIELD-2012-BP-20537BP

PATIENT
  Sex: Female

DRUGS (4)
  1. LOPRESSOR [Concomitant]
     Indication: HYPERTENSION
     Dates: start: 20110801
  2. ASPIRIN [Concomitant]
     Dates: start: 20110801
  3. COMBIVENT [Suspect]
     Indication: CHRONIC OBSTRUCTIVE PULMONARY DISEASE
     Dosage: 8 PUF
     Route: 055
     Dates: start: 20110801
  4. VENTOLIN [Concomitant]
     Indication: CHRONIC OBSTRUCTIVE PULMONARY DISEASE
     Route: 055
     Dates: start: 20110801

REACTIONS (2)
  - PRODUCT QUALITY ISSUE [None]
  - THROAT IRRITATION [None]
